FAERS Safety Report 4657594-0 (Version None)
Quarter: 2005Q2

REPORT INFORMATION
  Report Type: 
  Country: None (occurrence: None)
  Receive Date: 20050405
  Receipt Date: 20040406
  Transmission Date: 20051028
  Serious: Yes (Other)
  Sender: FDA-Public Use
  Company Number: 2004023507

PATIENT
  Sex: Female

DRUGS (2)
  1. GEODON [Suspect]
     Indication: ILL-DEFINED DISORDER
     Dosage: 60 MG (DAILY), ORAL
     Route: 048
  2. ESCITALOPRAM OXALATE [Suspect]
     Indication: ILL-DEFINED DISORDER
     Dosage: UNK (DAILY), UNKNOWN

REACTIONS (6)
  - AGITATION [None]
  - BODY TEMPERATURE INCREASED [None]
  - BRUXISM [None]
  - CONVULSION [None]
  - DRUG INTERACTION [None]
  - DYSKINESIA [None]
